FAERS Safety Report 5974397-5 (Version None)
Quarter: 2008Q4

REPORT INFORMATION
  Report Type: 
  Country: None (occurrence: None)
  Receive Date: 20081201
  Receipt Date: 20081111
  Transmission Date: 20090506
  Serious: Yes (Hospitalization, Other)
  Sender: FDA-Public Use
  Company Number: UY-PFIZER INC-2008096280

PATIENT
  Age: 44 Year
  Sex: Male

DRUGS (1)
  1. CHAMPIX [Suspect]
     Indication: SMOKING CESSATION THERAPY
     Route: 048
     Dates: start: 20080401

REACTIONS (3)
  - ANGINA PECTORIS [None]
  - ARTERIOSPASM CORONARY [None]
  - MYOCARDIAL ISCHAEMIA [None]
